FAERS Safety Report 7466879-4 (Version None)
Quarter: 2011Q2

REPORT INFORMATION
  Report Type: 
  Country: None (occurrence: None)
  Receive Date: 20110509
  Receipt Date: 20101215
  Transmission Date: 20111010
  Serious: Yes (Hospitalization, Other)
  Sender: FDA-Public Use
  Company Number: US-BAYER-201026341NA

PATIENT
  Age: 31 Year
  Sex: Female
  Weight: 65.76 kg

DRUGS (7)
  1. ASCORBIC ACID [Concomitant]
     Indication: PRODUCT USED FOR UNKNOWN INDICATION
     Dosage: UNK
  2. XANAX [Concomitant]
     Indication: BIPOLAR DISORDER
     Dosage: UNK
     Dates: start: 20070101
  3. YAZ [Suspect]
     Indication: CONTRACEPTION
     Dosage: UNK UNK, UNK
     Route: 048
     Dates: start: 20071101, end: 20080601
  4. TRILEPTAL [Concomitant]
     Indication: BIPOLAR DISORDER
     Dosage: UNK
     Dates: start: 20080101
  5. LITHIUM [Concomitant]
     Indication: BIPOLAR DISORDER
     Dosage: 600 MG, BID
     Dates: start: 20070801, end: 20080601
  6. ABILIFY [Concomitant]
     Indication: BIPOLAR DISORDER
     Dosage: 10 MG, UNK
     Dates: start: 20040101
  7. MOTRIN [Concomitant]
     Indication: POLYCYSTIC OVARIES
     Dosage: UNK
     Dates: start: 20080101

REACTIONS (8)
  - APHAGIA [None]
  - VOMITING [None]
  - LARGE INTESTINAL ULCER [None]
  - ABDOMINAL PAIN [None]
  - NAUSEA [None]
  - COLITIS ISCHAEMIC [None]
  - ABDOMINAL DISCOMFORT [None]
  - GASTROINTESTINAL NECROSIS [None]
